FAERS Safety Report 17107670 (Version 2)
Quarter: 2019Q4

REPORT INFORMATION
  Report Type: Spontaneous
  Country: JP (occurrence: JP)
  Receive Date: 20191204
  Receipt Date: 20191213
  Transmission Date: 20200122
  Serious: Yes (Hospitalization)
  Sender: FDA-Public Use
  Company Number: JP-SA-2019SA331564

PATIENT
  Age: 83 Year
  Sex: Female
  Weight: 53.1 kg

DRUGS (5)
  1. ZYPREXA [Concomitant]
     Active Substance: OLANZAPINE
     Dosage: UNK
     Dates: start: 20191115, end: 20191117
  2. XELOX [Concomitant]
     Active Substance: CAPECITABINE\OXALIPLATIN
     Indication: GASTRIC CANCER
     Dosage: 1800 MG, UNK
     Route: 048
     Dates: start: 20191003, end: 20191117
  3. TAKEPRON [Concomitant]
     Active Substance: LANSOPRAZOLE
     Dosage: UNK
     Dates: start: 20191115
  4. MYSLEE [Concomitant]
     Active Substance: ZOLPIDEM TARTRATE
     Dosage: UNK
     Dates: start: 20191115, end: 20191117
  5. ELPLAT [Suspect]
     Active Substance: OXALIPLATIN
     Indication: GASTRIC CANCER
     Dosage: 100 MG/M2, Q3W
     Route: 041

REACTIONS (2)
  - Haemoglobin decreased [Unknown]
  - Troponin I increased [Recovering/Resolving]

NARRATIVE: CASE EVENT DATE: 20191118
